FAERS Safety Report 12799809 (Version 1)
Quarter: 2016Q3

REPORT INFORMATION
  Report Type: Spontaneous
  Country: US (occurrence: US)
  Receive Date: 20160930
  Receipt Date: 20160930
  Transmission Date: 20161109
  Serious: Yes (Other)
  Sender: FDA-Public Use
  Company Number: US-LUNDBECK-DKLU2020009

PATIENT
  Sex: Female

DRUGS (3)
  1. ONFI [Concomitant]
     Active Substance: CLOBAZAM
     Indication: PRODUCT USED FOR UNKNOWN INDICATION
     Route: 065
  2. VIMPAT [Concomitant]
     Active Substance: LACOSAMIDE
     Indication: PRODUCT USED FOR UNKNOWN INDICATION
     Route: 065
  3. SABRIL [Suspect]
     Active Substance: VIGABATRIN
     Indication: GENERALISED TONIC-CLONIC SEIZURE
     Route: 048

REACTIONS (9)
  - Peripheral coldness [Unknown]
  - Cold sweat [Unknown]
  - Blindness [Unknown]
  - Seizure [Unknown]
  - Weight increased [Unknown]
  - Precocious puberty [Unknown]
  - Somnolence [Unknown]
  - Skin odour abnormal [Unknown]
  - Dyskinesia [Unknown]
